FAERS Safety Report 10903992 (Version 1)
Quarter: 2015Q1

REPORT INFORMATION
  Report Type: Spontaneous
  Country: US (occurrence: None)
  Receive Date: 20150306
  Receipt Date: 20150306
  Transmission Date: 20150721
  Serious: Yes (Other)
  Sender: FDA-Public Use
  Company Number: 2763580

PATIENT
  Age: 72 Year
  Sex: Male

DRUGS (2)
  1. FENTANYL CITRATE INJECTION USP (FENTANYL CITRATE) [Suspect]
     Active Substance: FENTANYL CITRATE
     Indication: ANGIOGRAM
     Dates: start: 20150216
  2. MIDAZOLAM HYDROCHLORIDE. [Suspect]
     Active Substance: MIDAZOLAM HYDROCHLORIDE
     Indication: ANGIOGRAM
     Dates: start: 20150216

REACTIONS (2)
  - Mental status changes [None]
  - Agitation [None]

NARRATIVE: CASE EVENT DATE: 20150216
